FAERS Safety Report 15692896 (Version 1)
Quarter: 2018Q4

REPORT INFORMATION
  Report Type: Spontaneous
  Country: US (occurrence: US)
  Receive Date: 20181206
  Receipt Date: 20181206
  Transmission Date: 20190205
  Serious: Yes (Other)
  Sender: FDA-Public Use
  Company Number: US-ABBVIE-18K-163-2379849-00

PATIENT
  Sex: Female

DRUGS (4)
  1. ORENCIA [Concomitant]
     Active Substance: ABATACEPT
     Indication: RHEUMATOID ARTHRITIS
     Route: 001
  2. XELJANZ [Concomitant]
     Active Substance: TOFACITINIB CITRATE
     Indication: PRODUCT USED FOR UNKNOWN INDICATION
     Route: 065
  3. METHOTREXATE. [Concomitant]
     Active Substance: METHOTREXATE
     Indication: PRODUCT USED FOR UNKNOWN INDICATION
     Dates: start: 201507
  4. HUMIRA [Suspect]
     Active Substance: ADALIMUMAB
     Indication: RHEUMATOID ARTHRITIS
     Route: 058
     Dates: start: 201703, end: 201710

REACTIONS (10)
  - Peripheral swelling [Unknown]
  - Malaise [Unknown]
  - Pain in extremity [Unknown]
  - Arthralgia [Unknown]
  - Musculoskeletal pain [Unknown]
  - Joint swelling [Unknown]
  - Drug effect decreased [Unknown]
  - Fatigue [Unknown]
  - Swelling [Unknown]
  - Rheumatoid arthritis [Recovering/Resolving]

NARRATIVE: CASE EVENT DATE: 2017
